FAERS Safety Report 7902853-9 (Version None)
Quarter: 2011Q4

REPORT INFORMATION
  Report Type: 
  Country: None (occurrence: None)
  Receive Date: 20111107
  Receipt Date: 20111026
  Transmission Date: 20120403
  Serious: Yes (Life-Threatening, Other)
  Sender: FDA-Public Use
  Company Number: LEO-2011-00903

PATIENT
  Sex: Female

DRUGS (1)
  1. INNOHEP [Suspect]
     Indication: PULMONARY EMBOLISM
     Dosage: (175 IUKG), SUBCUTANEOUS 175 IU/KG+ 10% EXTRA DOSE
     Route: 058

REACTIONS (2)
  - DISEASE PROGRESSION [None]
  - PULMONARY EMBOLISM [None]
